FAERS Safety Report 7654680-8 (Version None)
Quarter: 2011Q3

REPORT INFORMATION
  Report Type: 
  Country: None (occurrence: None)
  Receive Date: 20110804
  Receipt Date: 20110727
  Transmission Date: 20111222
  Serious: Yes (Hospitalization)
  Sender: FDA-Public Use
  Company Number: US-BIOGENIDEC-2011BI028340

PATIENT
  Age: 55 Year
  Sex: Male

DRUGS (5)
  1. XANADINE [Concomitant]
     Indication: MUSCLE SPASMS
  2. TYSABRI [Suspect]
     Indication: MULTIPLE SCLEROSIS
     Route: 042
     Dates: start: 20080126
  3. GABAPENTIN [Concomitant]
     Indication: MULTIPLE SCLEROSIS
  4. WELLBUTRIN [Concomitant]
     Indication: DEPRESSION
  5. ARICEPT [Concomitant]
     Indication: COGNITIVE DISORDER

REACTIONS (3)
  - APHASIA [None]
  - CARDIAC PERFORATION [None]
  - CEREBROVASCULAR ACCIDENT [None]
